FAERS Safety Report 7764407-7 (Version None)
Quarter: 2011Q3

REPORT INFORMATION
  Report Type: 
  Country: None (occurrence: None)
  Receive Date: 20110921
  Receipt Date: 20110912
  Transmission Date: 20111222
  Serious: Yes (Hospitalization)
  Sender: FDA-Public Use
  Company Number: IT-B.I. PHARMACEUTICALS,INC./RIDGEFIELD-2011-IT-00216IT

PATIENT
  Sex: Male

DRUGS (12)
  1. TRINIPLAS [Concomitant]
     Route: 062
  2. SPIRAMICINA [Suspect]
     Indication: PRODUCT USED FOR UNKNOWN INDICATION
     Dosage: 3000000 MU
     Route: 048
     Dates: start: 20110704, end: 20110714
  3. COUMADIN [Concomitant]
     Indication: ATRIAL FIBRILLATION
  4. BIFRIZIDE [Concomitant]
     Indication: HYPERTENSION
     Route: 048
  5. LANOXIN [Concomitant]
     Route: 048
  6. LASIX [Concomitant]
     Route: 048
  7. CARDICOR [Concomitant]
     Route: 048
  8. LANSOPRAZOLE [Concomitant]
     Indication: PROPHYLAXIS AGAINST GASTROINTESTINAL ULCER
     Route: 048
  9. LEVOBREN [Concomitant]
     Route: 048
  10. GLICLAZIDE [Concomitant]
     Indication: TYPE 2 DIABETES MELLITUS
     Route: 048
  11. PRAMIPEXOLE DIHYDROCHLORIDE [Suspect]
     Indication: PARKINSONISM
     Dosage: 0.72 MG
     Route: 048
     Dates: start: 20110601, end: 20110714
  12. SIMVASTATIN [Suspect]
     Indication: HYPERCHOLESTEROLAEMIA
     Dosage: 20 MG
     Route: 048
     Dates: start: 20010101

REACTIONS (3)
  - RENAL FAILURE ACUTE [None]
  - TROPONIN T INCREASED [None]
  - RHABDOMYOLYSIS [None]
